FAERS Safety Report 9221797 (Version 1)
Quarter: 2013Q2

REPORT INFORMATION
  Report Type: Spontaneous
  Country: US (occurrence: US)
  Receive Date: 20130410
  Receipt Date: 20130410
  Transmission Date: 20140414
  Serious: Yes (Other)
  Sender: FDA-Public Use
  Company Number: US-SANOFI-AVENTIS-2013SA036735

PATIENT
  Age: 83 Year
  Sex: Female

DRUGS (1)
  1. LANTUS [Suspect]
     Indication: TYPE 2 DIABETES MELLITUS
     Dosage: TAKEN FROM: 1 MONTH DOSE:40 UNIT(S)
     Route: 051
     Dates: start: 201302

REACTIONS (1)
  - Upper limb fracture [Recovered/Resolved]
